FAERS Safety Report 18314345 (Version 1)
Quarter: 2020Q3

REPORT INFORMATION
  Report Type: Spontaneous
  Country: US (occurrence: US)
  Receive Date: 20200925
  Receipt Date: 20200925
  Transmission Date: 20201103
  Serious: No
  Sender: FDA-Public Use
  Company Number: US-009507513-2009USA008951

PATIENT
  Sex: Male
  Weight: 207.71 kg

DRUGS (6)
  1. XANAX [Concomitant]
     Active Substance: ALPRAZOLAM
  2. LENVATINIB MESYLATE [Suspect]
     Active Substance: LENVATINIB MESYLATE
     Indication: GASTRIC CANCER
     Dosage: 2 CAPSULES, ONCE DAILY
     Route: 048
     Dates: start: 20200808
  3. FLUOCINOLONE ACETONIDE. [Concomitant]
     Active Substance: FLUOCINOLONE ACETONIDE
  4. CAPECITABINE. [Concomitant]
     Active Substance: CAPECITABINE
  5. KEYTRUDA [Suspect]
     Active Substance: PEMBROLIZUMAB
     Dosage: STRENGTH: 100MG/4ML VIAL
  6. VITAMINS (UNSPECIFIED) [Concomitant]
     Active Substance: VITAMINS

REACTIONS (1)
  - Rash [Recovering/Resolving]
